FAERS Safety Report 15731077 (Version 1)
Quarter: 2018Q4

REPORT INFORMATION
  Report Type: Spontaneous
  Country: CN (occurrence: CN)
  Receive Date: 20181217
  Receipt Date: 20181217
  Transmission Date: 20190205
  Serious: Yes (Death, Hospitalization)
  Sender: FDA-Public Use
  Company Number: CN-MYLANLABS-2018M1091536

PATIENT
  Age: 20 Year
  Sex: Male

DRUGS (17)
  1. DEXAMETHASONE. [Suspect]
     Active Substance: DEXAMETHASONE
     Indication: T-CELL TYPE ACUTE LEUKAEMIA
     Route: 065
     Dates: start: 201709
  2. DEXAMETHASONE. [Suspect]
     Active Substance: DEXAMETHASONE
     Indication: CENTRAL NERVOUS SYSTEM LEUKAEMIA
  3. CYTARABINE. [Suspect]
     Active Substance: CYTARABINE
     Indication: CENTRAL NERVOUS SYSTEM LEUKAEMIA
  4. CYCLOPHOSPHAMIDE. [Suspect]
     Active Substance: CYCLOPHOSPHAMIDE
     Indication: T-CELL TYPE ACUTE LEUKAEMIA
     Route: 065
     Dates: start: 201709
  5. VINCRISTINE [Suspect]
     Active Substance: VINCRISTINE
     Indication: CENTRAL NERVOUS SYSTEM LEUKAEMIA
  6. METHOTREXATE. [Suspect]
     Active Substance: METHOTREXATE
     Indication: CENTRAL NERVOUS SYSTEM LEUKAEMIA
  7. AZATHIOPRINE. [Suspect]
     Active Substance: AZATHIOPRINE
     Indication: CENTRAL NERVOUS SYSTEM LEUKAEMIA
     Dosage: FOR 2 WEEKS AS MAINTENANCE CHEMOTHERAPY
     Route: 065
     Dates: start: 201802
  8. PIRARUBICIN [Suspect]
     Active Substance: PIRARUBICIN
     Indication: CENTRAL NERVOUS SYSTEM LEUKAEMIA
  9. METHOTREXATE. [Suspect]
     Active Substance: METHOTREXATE
     Indication: T-CELL TYPE ACUTE LEUKAEMIA
     Route: 065
     Dates: start: 201709
  10. CYCLOPHOSPHAMIDE. [Suspect]
     Active Substance: CYCLOPHOSPHAMIDE
     Indication: CENTRAL NERVOUS SYSTEM LEUKAEMIA
  11. PIRARUBICIN [Suspect]
     Active Substance: PIRARUBICIN
     Indication: T-CELL TYPE ACUTE LEUKAEMIA
     Route: 065
     Dates: start: 201709
  12. CYTARABINE. [Suspect]
     Active Substance: CYTARABINE
     Indication: T-CELL TYPE ACUTE LEUKAEMIA
     Route: 065
     Dates: start: 201709
  13. VINCRISTINE [Suspect]
     Active Substance: VINCRISTINE
     Indication: T-CELL TYPE ACUTE LEUKAEMIA
     Route: 065
     Dates: start: 201709
  14. ADRIAMYCIN [Suspect]
     Active Substance: DOXORUBICIN HYDROCHLORIDE
     Indication: CENTRAL NERVOUS SYSTEM LEUKAEMIA
  15. ADRIAMYCIN [Suspect]
     Active Substance: DOXORUBICIN HYDROCHLORIDE
     Indication: T-CELL TYPE ACUTE LEUKAEMIA
     Route: 065
     Dates: start: 201709
  16. ASPARAGINASE [Suspect]
     Active Substance: ASPARAGINASE
     Indication: CENTRAL NERVOUS SYSTEM LEUKAEMIA
     Route: 065
  17. METHYLPREDNISOLONE SODIUM SUCCINATE. [Suspect]
     Active Substance: METHYLPREDNISOLONE SODIUM SUCCINATE
     Indication: CENTRAL NERVOUS SYSTEM LEUKAEMIA
     Route: 065

REACTIONS (3)
  - Rhabdomyolysis [Fatal]
  - Multiple organ dysfunction syndrome [Fatal]
  - Renal impairment [Fatal]
